FAERS Safety Report 25176234 (Version 1)
Quarter: 2025Q2

REPORT INFORMATION
  Report Type: Report from Study
  Country: CA (occurrence: CA)
  Receive Date: 20250409
  Receipt Date: 20250409
  Transmission Date: 20250717
  Serious: Yes (Other)
  Sender: CELLTRION
  Company Number: CA-PFIZER INC-2018146943

PATIENT

DRUGS (16)
  1. INFLIXIMAB [Suspect]
     Active Substance: INFLIXIMAB
     Indication: Polyarteritis nodosa
     Dosage: 100 MG, MONTHLY
     Route: 042
  2. AMLODIPINE [Concomitant]
     Active Substance: AMLODIPINE BESYLATE
     Indication: Polyarteritis nodosa
  3. AZATHIOPRINE [Concomitant]
     Active Substance: AZATHIOPRINE
     Indication: Polyarteritis nodosa
  4. CYCLOPHOSPHAMIDE [Concomitant]
     Active Substance: CYCLOPHOSPHAMIDE
     Indication: Polyarteritis nodosa
  5. ENALAPRIL [Concomitant]
     Active Substance: ENALAPRIL
     Indication: Polyarteritis nodosa
  6. FERROUS FUMARATE [Concomitant]
     Active Substance: FERROUS FUMARATE
     Indication: Polyarteritis nodosa
  7. INSULIN NOS [Concomitant]
     Active Substance: INSULIN NOS
     Indication: Polyarteritis nodosa
     Route: 048
  8. METHOTREXATE SODIUM [Concomitant]
     Active Substance: METHOTREXATE SODIUM
     Indication: Polyarteritis nodosa
  9. METFORMIN [Concomitant]
     Active Substance: METFORMIN HYDROCHLORIDE
     Indication: Polyarteritis nodosa
  10. NUTROPIN [Concomitant]
     Active Substance: SOMATROPIN
     Indication: Polyarteritis nodosa
     Route: 058
  11. PREDNISONE [Concomitant]
     Active Substance: PREDNISONE
     Indication: Polyarteritis nodosa
  12. PROTROPIN [Concomitant]
     Active Substance: SOMATREM
     Indication: Polyarteritis nodosa
     Route: 030
  13. RANITIDINE [Concomitant]
     Active Substance: RANITIDINE
     Indication: Polyarteritis nodosa
  14. SULFAMETHOXAZOLE [Concomitant]
     Active Substance: SULFAMETHOXAZOLE
     Indication: Polyarteritis nodosa
  15. TESTOSTERONE [Concomitant]
     Active Substance: TESTOSTERONE
     Indication: Polyarteritis nodosa
  16. SOMATREM [Concomitant]
     Active Substance: SOMATREM
     Indication: Polyarteritis nodosa

REACTIONS (2)
  - Lymphoproliferative disorder [Unknown]
  - Clear cell renal cell carcinoma [Unknown]
